FAERS Safety Report 8596954-2 (Version None)
Quarter: 2012Q3

REPORT INFORMATION
  Report Type: 
  Country: None (occurrence: None)
  Receive Date: 20120815
  Receipt Date: 20120808
  Transmission Date: 20120928
  Serious: Yes (Hospitalization)
  Sender: FDA-Public Use
  Company Number: US-RB-043306-12

PATIENT
  Age: 33 Year
  Sex: Female

DRUGS (1)
  1. SUBOXONE [Suspect]
     Indication: DRUG DEPENDENCE
     Route: 060
     Dates: start: 20100101, end: 20120401

REACTIONS (4)
  - FALL [None]
  - PAIN [None]
  - WRIST FRACTURE [None]
  - CLAVICLE FRACTURE [None]
